FAERS Safety Report 9781788 (Version 2)
Quarter: 2014Q1

REPORT INFORMATION
  Report Type: Report from Study
  Country: RU (occurrence: RU)
  Receive Date: 20131225
  Receipt Date: 20140305
  Transmission Date: 20141002
  Serious: Yes (Other)
  Sender: FDA-Public Use
  Company Number: RU-ROCHE-1324504

PATIENT
  Age: 51 Year
  Sex: Male
  Weight: 74 kg

DRUGS (12)
  1. AVASTIN [Suspect]
     Indication: COLON CANCER
     Route: 065
     Dates: start: 20130611
  2. AVASTIN [Suspect]
     Indication: METASTASES TO LIVER
  3. XELODA [Suspect]
     Indication: COLON CANCER
     Dosage: 1-7DAYS
     Route: 065
     Dates: start: 20131127, end: 20140221
  4. XELODA [Suspect]
     Indication: METASTASES TO LIVER
  5. 5-FLUOROURACIL [Concomitant]
     Indication: COLON CANCER
     Dosage: INFUSION 46 HOURS
     Route: 065
     Dates: start: 20130611, end: 20131127
  6. 5-FLUOROURACIL [Concomitant]
     Indication: METASTASES TO LIVER
     Route: 042
     Dates: start: 20140221
  7. LEUCOVORIN [Concomitant]
     Indication: METASTASES TO LIVER
     Route: 065
     Dates: start: 20130611, end: 20131127
  8. LEUCOVORIN [Concomitant]
     Indication: COLON CANCER
     Route: 065
     Dates: start: 20140221
  9. OXALIPLATIN [Concomitant]
     Indication: METASTASES TO LIVER
     Route: 065
     Dates: start: 20130611, end: 20131127
  10. OXALIPLATIN [Concomitant]
     Indication: COLON CANCER
     Route: 065
     Dates: start: 20140221
  11. IRINOTECAN [Concomitant]
     Indication: COLON CANCER
     Route: 065
     Dates: start: 20131127, end: 20140131
  12. IRINOTECAN [Concomitant]
     Indication: METASTASES TO LIVER

REACTIONS (1)
  - Disease progression [Not Recovered/Not Resolved]
